FAERS Safety Report 23648911 (Version 1)
Quarter: 2024Q1

REPORT INFORMATION
  Report Type: Spontaneous
  Country: CA (occurrence: CA)
  Receive Date: 20240319
  Receipt Date: 20240319
  Transmission Date: 20240409
  Serious: Yes (Other)
  Sender: FDA-Public Use
  Company Number: CA-TEVA-2023-CA-2909387

PATIENT
  Age: 50 Year
  Sex: Female

DRUGS (9)
  1. CAPECITABINE [Suspect]
     Active Substance: CAPECITABINE
     Indication: Invasive lobular breast carcinoma
     Dosage: DOSAGE TEXT: FREQUENCY TIME : CYCLICAL
     Route: 048
  2. CAPECITABINE [Suspect]
     Active Substance: CAPECITABINE
     Indication: Invasive lobular breast carcinoma
     Dosage: DOSE FORM: NOT SPECIFIED
     Route: 048
  3. METHOTREXATE [Suspect]
     Active Substance: METHOTREXATE
     Indication: Invasive lobular breast carcinoma
     Dosage: DOSAGE TEXT: FREQUENCY TIME : CYCLICAL
     Route: 037
  4. METHOTREXATE [Suspect]
     Active Substance: METHOTREXATE
     Indication: Invasive lobular breast carcinoma
     Dosage: DOSE FORM: NOT SPECIFIED
     Route: 037
  5. CYTARABINE [Suspect]
     Active Substance: CYTARABINE
     Indication: Invasive lobular breast carcinoma
     Dosage: DOSAGE TEXT: FREQUENCY TIME : CYCLICAL
     Route: 037
  6. CYTARABINE [Suspect]
     Active Substance: CYTARABINE
     Indication: Invasive lobular breast carcinoma
     Dosage: DOSAGE TEXT: FREQUENCY TIME : CYCLICAL
     Route: 037
  7. CYTARABINE [Suspect]
     Active Substance: CYTARABINE
     Indication: Invasive lobular breast carcinoma
     Dosage: DOSE FORM: NOT SPECIFIED
     Route: 037
  8. DEXAMETHASONE [Suspect]
     Active Substance: DEXAMETHASONE
     Indication: Metastases to meninges
     Dosage: DOSE FORM: NOT SPECIFIED
     Route: 065
  9. TAMOXIFEN [Concomitant]
     Active Substance: TAMOXIFEN
     Route: 065

REACTIONS (2)
  - Muscular weakness [Unknown]
  - Drug ineffective [Unknown]
